FAERS Safety Report 4611255-2 (Version None)
Quarter: 2005Q1

REPORT INFORMATION
  Report Type: 
  Country: None (occurrence: None)
  Receive Date: 20050315
  Receipt Date: 20050315
  Transmission Date: 20050727
  Serious: Yes (Other)
  Sender: FDA-Public Use
  Company Number: None

PATIENT
  Age: 58 Year
  Sex: Male
  Weight: 104.3273 kg

DRUGS (1)
  1. XALATAN [Suspect]
     Indication: OPEN ANGLE GLAUCOMA
     Dosage: 1 DROP IN EYES @ BEDTIME
     Route: 047
     Dates: start: 20041210, end: 20050214

REACTIONS (4)
  - EYE PRURITUS [None]
  - HEADACHE [None]
  - INSOMNIA [None]
  - RESTLESSNESS [None]
